FAERS Safety Report 6151057-1 (Version None)
Quarter: 2009Q2

REPORT INFORMATION
  Report Type: 
  Country: None (occurrence: None)
  Receive Date: 20090410
  Receipt Date: 20090401
  Transmission Date: 20091009
  Serious: Yes (Other)
  Sender: FDA-Public Use
  Company Number: US-JNJFOC-20090401351

PATIENT
  Sex: Female
  Weight: 54.43 kg

DRUGS (1)
  1. IBUPROFEN [Suspect]
     Indication: MIGRAINE
     Dosage: NO MORE THAN 2 DOSES DAILY

REACTIONS (4)
  - BARRETT'S OESOPHAGUS [None]
  - HAEMANGIOMA OF LIVER [None]
  - POST PROCEDURAL HAEMORRHAGE [None]
  - VISUAL IMPAIRMENT [None]
